FAERS Safety Report 16915560 (Version 1)
Quarter: 2019Q4

REPORT INFORMATION
  Report Type: Spontaneous
  Country: US (occurrence: US)
  Receive Date: 20191014
  Receipt Date: 20191014
  Transmission Date: 20200122
  Serious: No
  Sender: FDA-Public Use
  Company Number: US-CELGENEUS-USA-20191002218

PATIENT
  Age: 76 Year
  Sex: Female

DRUGS (2)
  1. OTEZLA [Suspect]
     Active Substance: APREMILAST
     Dosage: 60 MILLIGRAM
     Route: 048
     Dates: start: 201910
  2. OTEZLA [Suspect]
     Active Substance: APREMILAST
     Indication: PSORIASIS
     Dosage: 10, 20, 30 MG (STARTER PACK)
     Route: 048
     Dates: start: 20191003

REACTIONS (5)
  - Rash [Recovering/Resolving]
  - Rhinorrhoea [Recovering/Resolving]
  - Nasopharyngitis [Recovering/Resolving]
  - Pruritus [Recovering/Resolving]
  - Wheezing [Recovering/Resolving]

NARRATIVE: CASE EVENT DATE: 201910
